FAERS Safety Report 14882528 (Version 1)
Quarter: 2018Q2

REPORT INFORMATION
  Report Type: Spontaneous
  Country: DE (occurrence: DE)
  Receive Date: 20180511
  Receipt Date: 20180511
  Transmission Date: 20180711
  Serious: Yes (Other)
  Sender: FDA-Public Use
  Company Number: DE-ABBVIE-18P-062-2347673-00

PATIENT
  Age: 61 Year

DRUGS (4)
  1. VENETOCLAX. [Suspect]
     Active Substance: VENETOCLAX
     Indication: CHRONIC LYMPHOCYTIC LEUKAEMIA
     Dosage: STANDARD DOSE RAMP-UP (PROBABLY TO 100 MG)
     Route: 048
     Dates: start: 20180412, end: 20180427
  2. VENETOCLAX. [Suspect]
     Active Substance: VENETOCLAX
     Route: 048
     Dates: start: 20180502
  3. OFATUMUMAB [Concomitant]
     Active Substance: OFATUMUMAB
     Indication: PRODUCT USED FOR UNKNOWN INDICATION
     Dates: start: 2018
  4. VENETOCLAX. [Suspect]
     Active Substance: VENETOCLAX
     Route: 048
     Dates: start: 20180428, end: 20180501

REACTIONS (19)
  - Off label use [Unknown]
  - Blood creatinine decreased [Unknown]
  - Blood alkaline phosphatase normal [Unknown]
  - Blood potassium decreased [Unknown]
  - Renal disorder [Not Recovered/Not Resolved]
  - Alanine aminotransferase increased [Unknown]
  - Monocyte count increased [Unknown]
  - Blood lactate dehydrogenase increased [Not Recovered/Not Resolved]
  - Platelet count decreased [Unknown]
  - Neutrophil count decreased [Not Recovered/Not Resolved]
  - Blood sodium normal [Unknown]
  - Eosinophil count decreased [Unknown]
  - Lymphocyte count increased [Not Recovered/Not Resolved]
  - Blood uric acid increased [Recovered/Resolved]
  - Blood glucose normal [Unknown]
  - Red blood cell count decreased [Recovering/Resolving]
  - Glomerular filtration rate decreased [Unknown]
  - White blood cell count increased [Not Recovered/Not Resolved]
  - Haemoglobin decreased [Recovering/Resolving]

NARRATIVE: CASE EVENT DATE: 201804
